FAERS Safety Report 22200070 (Version 7)
Quarter: 2025Q3

REPORT INFORMATION
  Report Type: Report from Study
  Country: US (occurrence: US)
  Receive Date: 20230412
  Receipt Date: 20250715
  Transmission Date: 20251020
  Serious: Yes (Other)
  Sender: TAKEDA
  Company Number: US-TAKEDA-2022TUS093148

PATIENT
  Age: 63 Year
  Sex: Female

DRUGS (5)
  1. HUMAN IMMUNOGLOBULIN G [Suspect]
     Active Substance: HUMAN IMMUNOGLOBULIN G
     Indication: IgG deficiency
  2. HUMAN IMMUNOGLOBULIN G [Suspect]
     Active Substance: HUMAN IMMUNOGLOBULIN G
     Indication: Primary immunodeficiency syndrome
     Dates: start: 20221129, end: 20230328
  3. HUMAN IMMUNOGLOBULIN G [Suspect]
     Active Substance: HUMAN IMMUNOGLOBULIN G
     Indication: Hypogammaglobulinaemia
     Dosage: 40 GRAM, MONTHLY
  4. HUMAN IMMUNOGLOBULIN G [Suspect]
     Active Substance: HUMAN IMMUNOGLOBULIN G
     Dosage: 40 GRAM, MONTHLY
  5. VALTREX [Suspect]
     Active Substance: VALACYCLOVIR HYDROCHLORIDE
     Indication: Product used for unknown indication

REACTIONS (15)
  - Erythema multiforme [Unknown]
  - Infusion related reaction [Unknown]
  - Skin lesion [Unknown]
  - Epigastric discomfort [Unknown]
  - Depressed mood [Unknown]
  - Sinus disorder [Unknown]
  - Product dose omission in error [Unknown]
  - Herpes simplex [Unknown]
  - Pain [Unknown]
  - Rash [Recovered/Resolved]
  - Burning sensation [Unknown]
  - Muscle spasms [Unknown]
  - Chills [Unknown]
  - Fatigue [Unknown]
  - Oral herpes [Unknown]

NARRATIVE: CASE EVENT DATE: 20221129
